FAERS Safety Report 7492826-5 (Version None)
Quarter: 2011Q2

REPORT INFORMATION
  Report Type: 
  Country: None (occurrence: None)
  Receive Date: 20110520
  Receipt Date: 20110518
  Transmission Date: 20111010
  Serious: Yes (Hospitalization)
  Sender: FDA-Public Use
  Company Number: US-BRISTOL-MYERS SQUIBB COMPANY-15713985

PATIENT
  Age: 58 Year
  Sex: Male

DRUGS (10)
  1. LEVOTHYROXINE SODIUM [Concomitant]
  2. DIOVAN [Concomitant]
     Route: 048
  3. IPILIMUMAB [Suspect]
     Indication: MALIGNANT MELANOMA
     Route: 042
     Dates: start: 20110419
  4. MULTI-VITAMIN [Concomitant]
  5. IBUPROFEN [Concomitant]
     Dosage: 4 TABS,Q8H
     Route: 048
  6. OMEPRAZOLE [Concomitant]
     Route: 048
  7. FISH OIL [Concomitant]
  8. ASPIRIN [Concomitant]
     Route: 048
  9. COREG [Concomitant]
     Dosage: 1/2 TAP PO EVERY MORNING
     Route: 048
  10. ZOFRAN [Concomitant]
     Dosage: EVERY 6 HRS

REACTIONS (3)
  - SYNCOPE [None]
  - HYPOTENSION [None]
  - DEHYDRATION [None]
